FAERS Safety Report 13400668 (Version 1)
Quarter: 2017Q2

REPORT INFORMATION
  Report Type: Spontaneous
  Country: SE (occurrence: SE)
  Receive Date: 20170404
  Receipt Date: 20170404
  Transmission Date: 20170830
  Serious: Yes (Hospitalization)
  Sender: FDA-Public Use
  Company Number: SE-TEVA-752814ACC

PATIENT
  Age: 70 Year
  Sex: Female

DRUGS (13)
  1. CIRCADIN [Concomitant]
     Active Substance: MELATONIN
  2. VOLTAREN [Concomitant]
     Active Substance: DICLOFENAC SODIUM
  3. STESOLID ACTAVIS [Suspect]
     Active Substance: DIAZEPAM
     Dosage: HAVE TAKEN 60-70 TABLETS STESOLID A 50 MG
     Route: 048
     Dates: start: 20141109, end: 20141109
  4. IMOVANE [Suspect]
     Active Substance: ZOPICLONE
     Dosage: POSSIBLE 10 PIECES
     Route: 048
     Dates: start: 20141109, end: 20141109
  5. ALVEDON [Concomitant]
     Active Substance: ACETAMINOPHEN
  6. ATARAX [Concomitant]
     Active Substance: HYDROXYZINE HYDROCHLORIDE
  7. TERRACORTRIL MED POLYMYXIN B [Concomitant]
  8. ZOPIKLON MYLAN [Concomitant]
  9. DOXYFERM [Concomitant]
     Active Substance: DOXYCYCLINE
  10. OXYCONTIN [Concomitant]
     Active Substance: OXYCODONE HYDROCHLORIDE
  11. ACETYLCYSTEIN [Concomitant]
     Active Substance: ACETYLCYSTEINE
  12. PREDNISOLON ALTERNOVA [Concomitant]
     Active Substance: PREDNISOLONE
  13. BERIGLOBIN [Concomitant]
     Active Substance: HUMAN IMMUNOGLOBULIN G

REACTIONS (4)
  - Suicide attempt [Recovered/Resolved]
  - Dysarthria [Recovered/Resolved]
  - Somnolence [Recovered/Resolved]
  - Toxicity to various agents [Recovered/Resolved]

NARRATIVE: CASE EVENT DATE: 20141109
